FAERS Safety Report 9619596 (Version 1)
Quarter: 2013Q4

REPORT INFORMATION
  Report Type: Spontaneous
  Country: JP (occurrence: JP)
  Receive Date: 20131014
  Receipt Date: 20131014
  Transmission Date: 20140711
  Serious: Yes (Hospitalization, Other)
  Sender: FDA-Public Use
  Company Number: JP-AMGEN-JPNSP2013071631

PATIENT
  Sex: Female

DRUGS (1)
  1. ENBREL [Suspect]
     Indication: PRODUCT USED FOR UNKNOWN INDICATION
     Dosage: 50 MG, FREQUENCY UNKNOWN
     Route: 058

REACTIONS (6)
  - Compression fracture [Unknown]
  - Fibromyalgia [Unknown]
  - Pain [Unknown]
  - Cachexia [Unknown]
  - Decreased appetite [Unknown]
  - Fall [Unknown]
